FAERS Safety Report 9127980 (Version 1)
Quarter: 2013Q1

REPORT INFORMATION
  Report Type: Spontaneous
  Country: SE (occurrence: SE)
  Receive Date: 20130122
  Receipt Date: 20130122
  Transmission Date: 20140127
  Serious: Yes (Other)
  Sender: FDA-Public Use
  Company Number: SE-JNJFOC-20130109043

PATIENT
  Sex: Female

DRUGS (2)
  1. IPREN [Suspect]
     Indication: ABDOMINAL PAIN UPPER
     Route: 048
  2. IPREN [Suspect]
     Indication: PAIN
     Route: 048

REACTIONS (5)
  - Haematochezia [Unknown]
  - Abdominal pain upper [Unknown]
  - Abdominal pain [Unknown]
  - Corrosive oropharyngeal injury [Unknown]
  - Product quality issue [Unknown]
